APPROVED DRUG PRODUCT: METAPROTERENOL SULFATE
Active Ingredient: METAPROTERENOL SULFATE
Strength: 10MG/5ML
Dosage Form/Route: SYRUP;ORAL
Application: A074702 | Product #001
Applicant: WOCKHARDT EU OPERATIONS (SWISS) AG
Approved: Mar 24, 1997 | RLD: No | RS: No | Type: DISCN